FAERS Safety Report 5055107-5 (Version None)
Quarter: 2006Q3

REPORT INFORMATION
  Report Type: 
  Country: None (occurrence: None)
  Receive Date: 20060719
  Receipt Date: 20060523
  Transmission Date: 20061208
  Serious: No
  Sender: FDA-Public Use
  Company Number: US-AMGEN-US180082

PATIENT
  Sex: Male

DRUGS (9)
  1. EPOGEN [Suspect]
     Indication: DIALYSIS
     Route: 058
     Dates: start: 19980101
  2. SENSIPAR [Concomitant]
     Indication: HYPERPARATHYROIDISM SECONDARY
     Route: 065
  3. MEDICINALPRODUCT NOT SPECIFIED BY SENDER [Concomitant]
     Route: 065
  4. MEDICINALPRODUCT NOT SPECIFIED BY SENDER [Concomitant]
     Route: 065
  5. MEDICINALPRODUCT NOT SPECIFIED BY SENDER [Concomitant]
     Route: 065
  6. MEDICINALPRODUCT NOT SPECIFIED BY SENDER [Concomitant]
     Route: 065
  7. MEDICINALPRODUCT NOT SPECIFIED BY SENDER [Concomitant]
     Route: 065
  8. MEDICINALPRODUCT NOT SPECIFIED BY SENDER [Concomitant]
     Route: 042
  9. MEDICINALPRODUCT NOT SPECIFIED BY SENDER [Concomitant]

REACTIONS (3)
  - ARTERIOVENOUS FISTULA [None]
  - SKIN INFECTION [None]
  - THERAPEUTIC RESPONSE DECREASED [None]
